FAERS Safety Report 6415685-8 (Version None)
Quarter: 2009Q4

REPORT INFORMATION
  Report Type: 
  Country: None (occurrence: None)
  Receive Date: 20091021
  Receipt Date: 20091007
  Transmission Date: 20100525
  Serious: Yes (Death)
  Sender: FDA-Public Use
  Company Number: NL-JNJFOC-20091003537

PATIENT
  Age: 55 Year
  Sex: Male

DRUGS (2)
  1. DECITABINE (DECITABINE) LYOPHILIZED POWDER [Suspect]
     Indication: ACUTE MYELOID LEUKAEMIA
     Dosage: 125 MG/M2, 2 IN 1 DAY, INTRAVENOUS
     Route: 042
  2. AMSACRINE (AMSACRINE) UNSPECIFIED) [Suspect]
     Indication: ACUTE MYELOID LEUKAEMIA
     Dosage: 120 MG/M2, INTRAVENOUS
     Route: 042

REACTIONS (2)
  - DIVERTICULUM [None]
  - SMALL INTESTINAL HAEMORRHAGE [None]
